FAERS Safety Report 25585118 (Version 1)
Quarter: 2025Q3

REPORT INFORMATION
  Report Type: Spontaneous
  Country: US (occurrence: None)
  Receive Date: 20250718
  Receipt Date: 20250718
  Transmission Date: 20251021
  Serious: Yes (Hospitalization)
  Sender: FDA-CTU
  Company Number: None

PATIENT
  Age: 46 Year
  Sex: Male

DRUGS (19)
  1. MYCOPHENOLIC ACID [Suspect]
     Active Substance: MYCOPHENOLIC ACID
     Indication: Lung transplant
     Dosage: FREQUENCY : TWICE A DAY;?
     Route: 048
     Dates: start: 20240904
  2. TACROLIMUS [Suspect]
     Active Substance: TACROLIMUS
     Indication: Lung transplant
     Dosage: FREQUENCY : TWICE A DAY;?
     Route: 048
     Dates: start: 20240904
  3. mag-oxide 400 mg tablet [Concomitant]
  4. valganciclovir 450 mg tablet [Concomitant]
  5. calcium citrate + D3 tablet [Concomitant]
  6. sodium bicarbonate 10 gram tablet [Concomitant]
  7. OMEPRAZOLE [Concomitant]
     Active Substance: OMEPRAZOLE
  8. AZITHROMYCIN ANHYDROUS [Concomitant]
     Active Substance: AZITHROMYCIN ANHYDROUS
  9. atovaquone 750 mg/5 mL suspension [Concomitant]
  10. Freestyle Liber 3 Reader device [Concomitant]
  11. dronabinol 2.5 mg capsule [Concomitant]
  12. Novolin N U-100 Flexpen injection [Concomitant]
  13. PREDNISONE [Concomitant]
     Active Substance: PREDNISONE
  14. metformin ER 500 mg tablet [Concomitant]
  15. DICLOFENAC [Concomitant]
     Active Substance: DICLOFENAC
  16. FLUTICASONE [Concomitant]
     Active Substance: FLUTICASONE
  17. Freestyle Libre 3 Plus sensor 15 day [Concomitant]
  18. TACROLIMUS [Suspect]
     Active Substance: TACROLIMUS
     Route: 048
     Dates: start: 20240904
  19. LOKELMA [Suspect]
     Active Substance: SODIUM ZIRCONIUM CYCLOSILICATE
     Route: 048
     Dates: start: 20241124

REACTIONS (2)
  - Thrombosis [None]
  - Thrombosis [None]

NARRATIVE: CASE EVENT DATE: 20250606
